FAERS Safety Report 8543940-4 (Version None)
Quarter: 2012Q3

REPORT INFORMATION
  Report Type: 
  Country: None (occurrence: None)
  Receive Date: 20120727
  Receipt Date: 20120722
  Transmission Date: 20120928
  Serious: Yes (Other)
  Sender: FDA-Public Use
  Company Number: ES-PFIZER INC-2012163685

PATIENT
  Age: 37 Year
  Sex: Female
  Weight: 70 kg

DRUGS (1)
  1. DOSTINEX [Suspect]
     Indication: PROLACTINOMA
     Dosage: 1 TABLET AND A HALF, TWICE WEEKLY ON TUESDAY AND FRIDAY
     Dates: start: 20111001, end: 20120301

REACTIONS (1)
  - DRUG INTOLERANCE [None]
